FAERS Safety Report 15562671 (Version 3)
Quarter: 2018Q4

REPORT INFORMATION
  Report Type: Spontaneous
  Country: AU (occurrence: AU)
  Receive Date: 20181029
  Receipt Date: 20181213
  Transmission Date: 20190205
  Serious: Yes (Hospitalization)
  Sender: FDA-Public Use
  Company Number: AU-LPDUSPRD-20181977

PATIENT
  Age: 28 Year
  Sex: Female

DRUGS (9)
  1. VALDOXAN [Concomitant]
     Active Substance: AGOMELATINE
     Dosage: 25 MG, NIGHT
     Route: 065
  2. LORAZEPAM. [Concomitant]
     Active Substance: LORAZEPAM
     Dosage: 1 MG, AS REQUIRED
     Route: 048
     Dates: start: 20180327
  3. DIAZEPAM. [Concomitant]
     Active Substance: DIAZEPAM
     Dosage: 5 MG, AS REQUIRED
     Route: 065
  4. FERINJECT [Suspect]
     Active Substance: FERRIC CARBOXYMALTOSE
     Dosage: 1000 MG
     Route: 041
     Dates: start: 20180924, end: 20180924
  5. ESOMEPRAZOLE. [Concomitant]
     Active Substance: ESOMEPRAZOLE MAGNESIUM
     Dosage: 20 MG (1 IN 1D)
     Route: 048
     Dates: start: 20170123
  6. ZOELY [Concomitant]
     Active Substance: ESTRADIOL\NOMEGESTROL ACETATE
     Dosage: 1 IN 1 DAY
     Route: 048
     Dates: start: 20180907
  7. PAROXETINE. [Concomitant]
     Active Substance: PAROXETINE
     Dosage: 20MG(20 MG,MORNING)
     Route: 048
     Dates: start: 20180424
  8. ZOPICLONE [Concomitant]
     Active Substance: ZOPICLONE
     Dosage: 0.5 MG-2 MG
     Route: 065
  9. PRIMOLUT N [Concomitant]
     Active Substance: NORETHINDRONE
     Dosage: 15MG (5MG, 3 IN 1 D)
     Route: 048
     Dates: start: 201802

REACTIONS (20)
  - Dyspnoea [Unknown]
  - Rhinitis [Unknown]
  - C-reactive protein increased [Unknown]
  - Myalgia [Unknown]
  - Skin lesion [Unknown]
  - Oropharyngeal pain [Unknown]
  - Skin discolouration [Unknown]
  - Pyrexia [Unknown]
  - Chills [Unknown]
  - Headache [Unknown]
  - Poor quality sleep [Unknown]
  - Red blood cell sedimentation rate increased [Unknown]
  - Hypertension [Unknown]
  - Nausea [Unknown]
  - Cough [Unknown]
  - Influenza like illness [Unknown]
  - Tachycardia [Unknown]
  - Arthralgia [Unknown]
  - Condition aggravated [Unknown]
  - Tremor [Unknown]

NARRATIVE: CASE EVENT DATE: 20180925
